FAERS Safety Report 7538259-4 (Version None)
Quarter: 2011Q2

REPORT INFORMATION
  Report Type: 
  Country: None (occurrence: None)
  Receive Date: 20110609
  Receipt Date: 20021001
  Transmission Date: 20111010
  Serious: Yes (Death)
  Sender: FDA-Public Use
  Company Number: PHEH2002US08821

PATIENT
  Sex: Male

DRUGS (10)
  1. CELEXA [Concomitant]
  2. PROZAC [Concomitant]
  3. EXELON [Concomitant]
  4. ASPIRIN [Concomitant]
  5. TRANDATE [Concomitant]
  6. DETROL [Concomitant]
  7. NORVASC [Concomitant]
  8. MULTI-VITAMINS [Concomitant]
  9. CLOZAPINE [Suspect]
     Dosage: 37.5 MG/DAY
     Route: 048
     Dates: start: 20011010
  10. VITAMIN E [Concomitant]

REACTIONS (1)
  - DEATH [None]
